FAERS Safety Report 10211062 (Version 1)
Quarter: 2014Q2

REPORT INFORMATION
  Report Type: Spontaneous
  Country: US (occurrence: None)
  Receive Date: 20140530
  Receipt Date: 20140530
  Transmission Date: 20141212
  Serious: Yes (Disabling, Other)
  Sender: FDA-Public Use
  Company Number: None

PATIENT
  Age: 22 Year
  Sex: Female
  Weight: 64.41 kg

DRUGS (1)
  1. MINOCYCLINE [Suspect]
     Indication: ACNE
     Dosage: 1 PILL, TWICE DAILY, TAKEN BY MOUTH
     Route: 048
     Dates: start: 20130921, end: 20131011

REACTIONS (7)
  - Tinnitus [None]
  - Headache [None]
  - Visual impairment [None]
  - Disorientation [None]
  - Infectious mononucleosis [None]
  - Papilloedema [None]
  - Intracranial pressure increased [None]
